FAERS Safety Report 10557577 (Version 1)
Quarter: 2014Q4

REPORT INFORMATION
  Report Type: Spontaneous
  Country: US (occurrence: US)
  Receive Date: 20141031
  Receipt Date: 20141031
  Transmission Date: 20150529
  Serious: No
  Sender: FDA-Public Use
  Company Number: US-PFIZER INC-2014298823

PATIENT
  Age: 47 Year
  Sex: Female
  Weight: 86.17 kg

DRUGS (1)
  1. GABAPENTIN. [Suspect]
     Active Substance: GABAPENTIN
     Indication: FIBROMYALGIA
     Dosage: 100 MG, 3X/DAY
     Dates: start: 20140715, end: 20141024

REACTIONS (6)
  - Drug tolerance decreased [Recovering/Resolving]
  - Social avoidant behaviour [Recovering/Resolving]
  - Dizziness [Recovering/Resolving]
  - Euphoric mood [Recovering/Resolving]
  - Somnolence [Recovering/Resolving]
  - Nausea [Recovering/Resolving]
